FAERS Safety Report 8885276 (Version 2)
Quarter: 2012Q4

REPORT INFORMATION
  Report Type: 
  Country: US (occurrence: US)
  Receive Date: 20121101
  Receipt Date: 20121220
  Transmission Date: 20130627
  Serious: No
  Sender: FDA-Public Use
  Company Number: US-009507513-1210USA009820

PATIENT
  Age: 74 Year
  Sex: Female
  Weight: 65.76 kg

DRUGS (5)
  1. ZEGERID OTC CAPSULES [Suspect]
     Indication: PRODUCT USED FOR UNKNOWN INDICATION
     Dosage: 20 mg, qd
     Route: 048
     Dates: start: 20120827, end: 20120829
  2. DIOVAN [Concomitant]
     Indication: BLOOD PRESSURE
  3. CALCIUM (UNSPECIFIED) [Concomitant]
  4. VITAMIN D (UNSPECIFIED) [Concomitant]
  5. TRAMADOL HYDROCHLORIDE [Concomitant]
     Indication: PAIN

REACTIONS (4)
  - Tremor [Recovered/Resolved]
  - Nervousness [Recovered/Resolved]
  - Abdominal discomfort [Recovered/Resolved]
  - Mood altered [Recovered/Resolved]
